FAERS Safety Report 21534718 (Version 1)
Quarter: 2022Q4

REPORT INFORMATION
  Report Type: Spontaneous
  Country: US (occurrence: US)
  Receive Date: 20221101
  Receipt Date: 20221101
  Transmission Date: 20230113
  Serious: No
  Sender: FDA-Public Use
  Company Number: US-MIGRATION_PFIZER-2022BHV001773

PATIENT
  Age: 62 Year
  Sex: Female

DRUGS (2)
  1. NURTEC ODT [Suspect]
     Active Substance: RIMEGEPANT SULFATE
     Indication: Migraine
     Dosage: 1 TABLET/NO MORE THAN 1 DOSE IN 24 HOURS?PATIENT WAS GIVEN QUANTITY OF 8 FOR 30DAYS WITH 11 REFILLS
     Route: 048
     Dates: start: 20220609
  2. SUMATRIPTAN [Concomitant]
     Active Substance: SUMATRIPTAN
     Indication: Migraine without aura
     Route: 065

REACTIONS (1)
  - Drug ineffective [Unknown]
